FAERS Safety Report 18970093 (Version 1)
Quarter: 2021Q1

REPORT INFORMATION
  Report Type: Spontaneous
  Country: US (occurrence: US)
  Receive Date: 20210304
  Receipt Date: 20210304
  Transmission Date: 20210420
  Serious: No
  Sender: FDA-Public Use
  Company Number: US-AMRYT PHARMACEUTICALS DAC-AEGR005074

PATIENT
  Age: 6 Year
  Sex: Female
  Weight: 14.79 kg

DRUGS (3)
  1. FLINTSTONES MULTIPLE VITAMINS [VITAMINS NOS] [Concomitant]
     Indication: PRODUCT USED FOR UNKNOWN INDICATION
  2. MYALEPT [Suspect]
     Active Substance: METRELEPTIN
     Dosage: 0.6 MILLIGRAM, QD
     Route: 058
  3. MYALEPT [Suspect]
     Active Substance: METRELEPTIN
     Indication: CONGENITAL GENERALISED LIPODYSTROPHY
     Dosage: 0.6 MILLIGRAM, QD
     Route: 058
     Dates: end: 202101

REACTIONS (2)
  - Therapy interrupted [Recovered/Resolved]
  - No adverse event [Unknown]

NARRATIVE: CASE EVENT DATE: 202101
